FAERS Safety Report 20967600 (Version 8)
Quarter: 2024Q1

REPORT INFORMATION
  Report Type: Spontaneous
  Country: CA (occurrence: CA)
  Receive Date: 20220616
  Receipt Date: 20240301
  Transmission Date: 20240409
  Serious: Yes (Other)
  Sender: FDA-Public Use
  Company Number: CA-PFIZER INC-202200693918

PATIENT
  Age: 32 Year
  Sex: Female
  Weight: 43.54 kg

DRUGS (2)
  1. BOSULIF [Suspect]
     Active Substance: BOSUTINIB MONOHYDRATE
     Indication: Chronic myeloid leukaemia
     Dosage: 100/500MG TBD PRESCRIBED IN 3RD LINE
  2. BOSULIF [Suspect]
     Active Substance: BOSUTINIB MONOHYDRATE
     Dosage: 100 MG TABLET, TAKE 4 TABLETS
     Route: 048
     Dates: start: 20220519

REACTIONS (5)
  - Haematochezia [Unknown]
  - Haemorrhoids [Unknown]
  - Weight fluctuation [Unknown]
  - Diarrhoea [Unknown]
  - Abdominal pain upper [Unknown]
